FAERS Safety Report 24409545 (Version 1)
Quarter: 2024Q4

REPORT INFORMATION
  Report Type: Spontaneous
  Country: CN (occurrence: CN)
  Receive Date: 20241008
  Receipt Date: 20241008
  Transmission Date: 20250115
  Serious: Yes (Hospitalization)
  Sender: NOVAST
  Company Number: CN-NOVAST LABORATORIES INC.-2024NOV000308

PATIENT

DRUGS (4)
  1. METOPROLOL SUCCINATE [Suspect]
     Active Substance: METOPROLOL SUCCINATE
     Indication: Acute myocardial infarction
     Dosage: 12.5 MILLIGRAM/TABLET ONCE A DAY
     Route: 048
     Dates: start: 20240828, end: 20240909
  2. ROSUVASTATIN CALCIUM [Suspect]
     Active Substance: ROSUVASTATIN CALCIUM
     Indication: Coronary artery disease
     Dosage: 10 MILLIGRAM/TABLET, 2 TABLETS, PER DAY
     Route: 048
     Dates: start: 20240828, end: 20240907
  3. CLOPIDOGREL BISULFATE [Suspect]
     Active Substance: CLOPIDOGREL BISULFATE
     Indication: Acute myocardial infarction
     Dosage: 75 MILLIGRAM/TABLET, 1 TABLET, PER DAY ON FASTING CONDITION
     Route: 048
     Dates: start: 20240828, end: 20240909
  4. ASPIRIN [Suspect]
     Active Substance: ASPIRIN
     Indication: Acute myocardial infarction
     Dosage: 100 MILLIGRAM/TABLET, 1 TABLET, PER DAY ON FASTING CONDITION
     Route: 048
     Dates: start: 20240828, end: 20240909

REACTIONS (6)
  - Papule [Unknown]
  - Cough [Unknown]
  - Erythema [Unknown]
  - Pyrexia [Unknown]
  - Productive cough [Unknown]
  - Pruritus [Unknown]

NARRATIVE: CASE EVENT DATE: 20240907
